FAERS Safety Report 19486300 (Version 4)
Quarter: 2021Q4

REPORT INFORMATION
  Report Type: Spontaneous
  Country: DE (occurrence: DE)
  Receive Date: 20210702
  Receipt Date: 20211103
  Transmission Date: 20220303
  Serious: Yes (Death, Hospitalization)
  Sender: FDA-Public Use
  Company Number: None

PATIENT
  Age: 73 Year
  Sex: Male
  Weight: 85 kg

DRUGS (6)
  1. CARBOPLATIN [Suspect]
     Active Substance: CARBOPLATIN
     Indication: Non-small cell lung cancer
     Dosage: 220 MG, UNKNOWN
     Route: 042
     Dates: start: 20201005
  2. PEMETREXED DISODIUM [Suspect]
     Active Substance: PEMETREXED DISODIUM
     Indication: Non-small cell lung cancer
     Dosage: 500 MG, UNKNOWN
     Route: 042
     Dates: start: 20201005
  3. PEMBROLIZUMAB [Suspect]
     Active Substance: PEMBROLIZUMAB
     Indication: Non-small cell lung cancer
     Dosage: 200 MG, UNKNOWN
     Route: 042
     Dates: start: 20201005, end: 20201103
  4. DEXAMETHASONE [Concomitant]
     Active Substance: DEXAMETHASONE
     Indication: Product used for unknown indication
     Dosage: 12 MG, UNKNOWN, ADMINISTERED PER CYCLE, THERAPY DATE FOR ALL: FROM 05-OCT?UNTIL 26-OCT-2020
     Route: 042
  5. GRANISETRON [Concomitant]
     Active Substance: GRANISETRON
     Dosage: 1 MG, UNKNOWN, ADMINISTERED PER CYCLE, THERAPY DATE FOR ALL: FROM 05-OCT?UNTIL 26-OCT-2020
     Route: 042
  6. PEGFILGRASTIM [Concomitant]
     Active Substance: PEGFILGRASTIM
     Indication: Product used for unknown indication
     Dosage: 6 MG, UNKNOWN, ADMINISTERED PER CYCLE,THERAPY DATE FOR ALL: FROM 05OCT UNTIL?26OCT2020
     Route: 058

REACTIONS (3)
  - Pancytopenia [Fatal]
  - Sepsis [Fatal]
  - Staphylococcal sepsis [Fatal]

NARRATIVE: CASE EVENT DATE: 20201103
